FAERS Safety Report 5844606-1 (Version None)
Quarter: 2008Q3

REPORT INFORMATION
  Report Type: 
  Country: None (occurrence: None)
  Receive Date: 20080812
  Receipt Date: 20080313
  Transmission Date: 20090109
  Serious: Yes (Other)
  Sender: FDA-Public Use
  Company Number: 2008S1011873

PATIENT
  Age: 77 Year
  Sex: Male

DRUGS (4)
  1. AMLODIPINE [Suspect]
     Indication: HYPERTENSION
     Dosage: 10 MG;
     Dates: start: 20070919, end: 20080201
  2. DOXAZOSIN MESYLATE [Concomitant]
  3. RAMIPRIL [Concomitant]
  4. SIMVASTATIN [Concomitant]

REACTIONS (4)
  - JOINT SWELLING [None]
  - NEPHRITIC SYNDROME [None]
  - OEDEMA PERIPHERAL [None]
  - SCROTAL OEDEMA [None]
